FAERS Safety Report 25819698 (Version 2)
Quarter: 2025Q4

REPORT INFORMATION
  Report Type: Spontaneous
  Country: US (occurrence: US)
  Receive Date: 20250918
  Receipt Date: 20251217
  Transmission Date: 20260117
  Serious: No
  Sender: SANOFI AVENTIS
  Company Number: US-SA-2025SA278899

PATIENT
  Age: 68 Year
  Sex: Female
  Weight: 112.02 kg

DRUGS (10)
  1. DUPIXENT [Suspect]
     Active Substance: DUPILUMAB
     Indication: Neurodermatitis
     Dosage: 300 MG, QOW
     Route: 058
  2. VITAMIN D3 [Concomitant]
     Active Substance: CHOLECALCIFEROL
     Dosage: 300 UNK
  3. MAGNESIUM [Concomitant]
     Active Substance: MAGNESIUM
  4. MELATONIN [Concomitant]
     Active Substance: MELATONIN
  5. PLAVIX [Concomitant]
     Active Substance: CLOPIDOGREL BISULFATE
  6. METOPROLOL SUCCINATE [Concomitant]
     Active Substance: METOPROLOL SUCCINATE
  7. DULOXETINE HYDROCHLORIDE [Concomitant]
     Active Substance: DULOXETINE HYDROCHLORIDE
  8. BUMETANIDE [Concomitant]
     Active Substance: BUMETANIDE
  9. ELIQUIS [Concomitant]
     Active Substance: APIXABAN
  10. LEVOTHYROXINE SODIUM [Concomitant]
     Active Substance: LEVOTHYROXINE SODIUM

REACTIONS (5)
  - Neurodermatitis [Unknown]
  - Rebound effect [Unknown]
  - Pruritus [Unknown]
  - Skin abrasion [Unknown]
  - Product dose omission issue [Unknown]

NARRATIVE: CASE EVENT DATE: 20250101
